FAERS Safety Report 7998344-X (Version None)
Quarter: 2011Q4

REPORT INFORMATION
  Report Type: 
  Country: None (occurrence: None)
  Receive Date: 20111221
  Receipt Date: 20110616
  Transmission Date: 20120403
  Serious: No
  Sender: FDA-Public Use
  Company Number: US-GLAXOSMITHKLINE-A0939140A

PATIENT
  Sex: Male

DRUGS (1)
  1. LOVAZA [Suspect]
     Indication: BLOOD CHOLESTEROL INCREASED
     Dosage: 1G PER DAY
     Route: 065

REACTIONS (4)
  - PAIN IN EXTREMITY [None]
  - DRUG INEFFECTIVE [None]
  - CHEST DISCOMFORT [None]
  - BACK PAIN [None]
